FAERS Safety Report 17359907 (Version 1)
Quarter: 2020Q1

REPORT INFORMATION
  Report Type: Report from Study
  Country: IT (occurrence: IT)
  Receive Date: 20200203
  Receipt Date: 20200203
  Transmission Date: 20200409
  Serious: Yes (Other)
  Sender: FDA-Public Use
  Company Number: IT-ACCORD-154814

PATIENT
  Age: 45 Year
  Sex: Male

DRUGS (9)
  1. IRINOTECAN ACCORD [Suspect]
     Active Substance: IRINOTECAN
     Indication: METASTASES TO LIVER
     Route: 058
     Dates: start: 20190116, end: 20190306
  2. ZARZIO [Concomitant]
     Active Substance: FILGRASTIM
     Dosage: STRENGTH: 30 MU / 0.5 ML SOLUTION FOR INJECTION OR INFUSION IN PRE-FILLED S
  3. LOPERAMIDE HEXAL [Concomitant]
  4. OXALIPLATIN AUROBINDO [Suspect]
     Active Substance: OXALIPLATIN
     Indication: METASTASES TO LIVER
     Route: 042
     Dates: start: 20160823, end: 20191113
  5. TWICE [Concomitant]
  6. FLUOROURACIL AHCL [Suspect]
     Active Substance: FLUOROURACIL
     Indication: METASTASES TO LIVER
     Dates: start: 20181204, end: 20191114
  7. ERBITUX [Suspect]
     Active Substance: CETUXIMAB
     Indication: METASTASES TO LIVER
     Route: 042
     Dates: start: 20190116, end: 20190306
  8. MYCOSTATIN [Concomitant]
     Active Substance: NYSTATIN
  9. PLASIL [Concomitant]
     Active Substance: METOCLOPRAMIDE HYDROCHLORIDE

REACTIONS (7)
  - Muscle spasms [Unknown]
  - Hypersensitivity [Unknown]
  - Feeling cold [Unknown]
  - Paraesthesia [Unknown]
  - Pyrexia [Unknown]
  - Off label use [Unknown]
  - Fatigue [Unknown]

NARRATIVE: CASE EVENT DATE: 20190201
